FAERS Safety Report 16766686 (Version 1)
Quarter: 2019Q3

REPORT INFORMATION
  Report Type: Spontaneous
  Country: CN (occurrence: CN)
  Receive Date: 20190903
  Receipt Date: 20190903
  Transmission Date: 20191005
  Serious: Yes (Hospitalization, Other)
  Sender: FDA-Public Use
  Company Number: CN-PFIZER INC-2019376197

PATIENT
  Age: 55 Year
  Sex: Male
  Weight: 70 kg

DRUGS (1)
  1. CORDARONE [Suspect]
     Active Substance: AMIODARONE HYDROCHLORIDE
     Indication: HEART RATE ABNORMAL
     Dosage: 0.1 G, QD
     Route: 048
     Dates: start: 20190101, end: 20190820

REACTIONS (5)
  - Hypothyroidism [Unknown]
  - Headache [Unknown]
  - Palpitations [Unknown]
  - Epilepsy [Unknown]
  - Arrhythmia [Unknown]

NARRATIVE: CASE EVENT DATE: 201906
